FAERS Safety Report 7173493-7 (Version None)
Quarter: 2010Q4

REPORT INFORMATION
  Report Type: 
  Country: None (occurrence: None)
  Receive Date: 20101219
  Receipt Date: 20100302
  Transmission Date: 20110411
  Serious: No
  Sender: FDA-Public Use
  Company Number: US-AMGEN-KDL396060

PATIENT

DRUGS (5)
  1. ENBREL [Suspect]
     Indication: PRODUCT USED FOR UNKNOWN INDICATION
     Dosage: 50 MG, QWK
     Route: 058
  2. ACTONEL [Concomitant]
     Dosage: 150 MG, UNK
  3. ESOMEPRAZOLE MAGNESIUM [Concomitant]
     Dosage: 20 MG, UNK
  4. BROMFED [Concomitant]
     Dosage: UNK UNK, UNK
  5. LEVOTHYROXINE SODIUM [Concomitant]
     Dosage: 25 A?G, UNK

REACTIONS (1)
  - RASH [None]
